FAERS Safety Report 9580312 (Version 4)
Quarter: 2014Q2

REPORT INFORMATION
  Report Type: Spontaneous
  Country: FR (occurrence: None)
  Receive Date: 20130930
  Receipt Date: 20140603
  Transmission Date: 20141212
  Serious: Yes (Hospitalization)
  Sender: FDA-Public Use
  Company Number: 2013AP008262

PATIENT
  Age: 86 Year
  Sex: Male

DRUGS (5)
  1. FERRIPROX [Suspect]
     Indication: MYELODYSPLASTIC SYNDROME
     Route: 048
     Dates: start: 20130715, end: 20130731
  2. KARDEGIC [Concomitant]
  3. TARKA [Concomitant]
  4. HYPERIUM [Concomitant]
  5. ESOMEPRAZOLE [Concomitant]

REACTIONS (1)
  - Agranulocytosis [None]
